FAERS Safety Report 5376253-2 (Version None)
Quarter: 2007Q3

REPORT INFORMATION
  Report Type: 
  Country: None (occurrence: None)
  Receive Date: 20070702
  Receipt Date: 20070621
  Transmission Date: 20080115
  Serious: Yes (Life-Threatening)
  Sender: FDA-Public Use
  Company Number: JP-ROCHE-494682

PATIENT
  Age: 11 Year
  Sex: Male
  Weight: 32 kg

DRUGS (11)
  1. TAMIFLU [Suspect]
     Indication: INFLUENZA
     Dosage: FORM: DRY SYRUP.
     Route: 048
     Dates: start: 20070312, end: 20070312
  2. KIPRES [Concomitant]
     Dosage: FORM REPORTED AS CHEWABLE TABLET.
     Route: 048
     Dates: start: 20050531
  3. SPIROPENT [Concomitant]
     Route: 048
     Dates: start: 20051026
  4. MUCOSAL [Concomitant]
     Route: 048
     Dates: start: 20051026
  5. INTAL [Concomitant]
     Dosage: ROUTE REPORTED AS RESPIRATORY (INHALATION).
     Route: 055
     Dates: start: 20051026
  6. MEPTIN [Concomitant]
     Dosage: ROUTE REPORTED AS RESPIRATORY (INHALATION).
     Route: 055
     Dates: start: 20051026
  7. ASTOMIN [Concomitant]
     Route: 048
     Dates: start: 20060310
  8. TAVEGYL [Concomitant]
     Route: 048
     Dates: start: 20060310
  9. QVAR 40 [Concomitant]
     Dosage: ROUTE REPORTED AS RESPIRATORY (INHALATION).
     Route: 055
     Dates: start: 20060310
  10. THEOPHYLLINE [Concomitant]
     Dosage: TRADE NAME: UNICON.
     Route: 048
     Dates: start: 20060809
  11. ANHIBA [Concomitant]
     Route: 054

REACTIONS (1)
  - ABNORMAL BEHAVIOUR [None]
